FAERS Safety Report 6388275-3 (Version None)
Quarter: 2009Q4

REPORT INFORMATION
  Report Type: 
  Country: None (occurrence: None)
  Receive Date: 20091001
  Receipt Date: 20091001
  Transmission Date: 20100525
  Serious: Yes (Life-Threatening, Hospitalization)
  Sender: FDA-Public Use
  Company Number: None

PATIENT
  Age: 42 Year
  Sex: Male
  Weight: 110 kg

DRUGS (1)
  1. IMIPENEM AND CILASTATIN SODIUM [Suspect]
     Indication: PANCREATITIS
     Dosage: 500 MG QID IV
     Route: 042
     Dates: start: 20090721, end: 20090722

REACTIONS (2)
  - ANAPHYLACTIC REACTION [None]
  - RESPIRATORY DEPRESSION [None]
